FAERS Safety Report 13093278 (Version 1)
Quarter: 2017Q1

REPORT INFORMATION
  Report Type: Spontaneous
  Country: DE (occurrence: DE)
  Receive Date: 20170106
  Receipt Date: 20170106
  Transmission Date: 20170428
  Serious: Yes (Life-Threatening)
  Sender: FDA-Public Use
  Company Number: DE-TEVA-724400GER

PATIENT
  Age: 76 Year
  Sex: Male
  Weight: 85 kg

DRUGS (1)
  1. PROPOFOL. [Suspect]
     Active Substance: PROPOFOL
     Indication: SEDATION
     Dosage: WITH PERFUSOR MAXIMUM 6320 MG PER DAY (ONLY ONE DAY), OTHERWISE APPROX. 4320 MG PER DAY
     Route: 042
     Dates: start: 20161215, end: 20161223

REACTIONS (1)
  - Propofol infusion syndrome [Recovering/Resolving]

NARRATIVE: CASE EVENT DATE: 20161220
